FAERS Safety Report 7153845-1 (Version None)
Quarter: 2010Q4

REPORT INFORMATION
  Report Type: 
  Country: None (occurrence: None)
  Receive Date: 20101213
  Receipt Date: 20100923
  Transmission Date: 20110411
  Serious: No
  Sender: FDA-Public Use
  Company Number: US-ABBOTT-10P-163-0673774-00

PATIENT
  Sex: Female
  Weight: 63.56 kg

DRUGS (2)
  1. MERIDIA [Suspect]
     Indication: WEIGHT DECREASED
     Dosage: MD PRESCRIBED FOR 1MO ON, 1 MO OFF.
     Route: 048
     Dates: start: 20090101, end: 20100923
  2. GLUCOSAMINE/CHONDROITIN [Concomitant]
     Indication: SUPPLEMENTATION THERAPY
     Route: 048
     Dates: end: 20100923

REACTIONS (3)
  - DRUG INEFFECTIVE [None]
  - HEADACHE [None]
  - IRRITABILITY [None]
